FAERS Safety Report 10156043 (Version 1)
Quarter: 2014Q2

REPORT INFORMATION
  Report Type: Spontaneous
  Country: US (occurrence: US)
  Receive Date: 20140506
  Receipt Date: 20140506
  Transmission Date: 20141212
  Serious: Yes (Hospitalization, Other)
  Sender: FDA-Public Use
  Company Number: US-GILEAD-2014-0101650

PATIENT
  Sex: Female

DRUGS (2)
  1. LETAIRIS [Suspect]
     Indication: PULMONARY HYPERTENSION
     Dosage: 10 MG, QD
     Route: 065
     Dates: start: 20131114
  2. ADCIRCA [Suspect]
     Indication: PULMONARY HYPERTENSION
     Route: 065

REACTIONS (2)
  - Thrombosis [Recovered/Resolved]
  - Pneumonia [Recovered/Resolved]
